FAERS Safety Report 24848564 (Version 1)
Quarter: 2025Q1

REPORT INFORMATION
  Report Type: Spontaneous
  Country: US (occurrence: US)
  Receive Date: 20250116
  Receipt Date: 20250116
  Transmission Date: 20250409
  Serious: No
  Sender: RICONPHARMA LLC
  Company Number: US-RICONPHARMA, LLC-2024RIC000055

PATIENT

DRUGS (5)
  1. SCOPOLAMINE [Suspect]
     Active Substance: SCOPOLAMINE
     Indication: Nausea
     Route: 062
  2. DILAUDID [Concomitant]
     Active Substance: HYDROMORPHONE HYDROCHLORIDE
     Indication: Pain
     Route: 065
  3. ELIQUIS [Concomitant]
     Active Substance: APIXABAN
     Indication: Factor V Leiden mutation
     Route: 065
  4. VITAMIN D [Concomitant]
     Active Substance: VITAMIN D NOS
     Indication: Product used for unknown indication
     Route: 065
  5. ATORVASTATIN [Concomitant]
     Active Substance: ATORVASTATIN
     Indication: Blood cholesterol
     Route: 065

REACTIONS (9)
  - Burning sensation [Recovered/Resolved]
  - Stomatitis [Recovered/Resolved]
  - Burn oral cavity [Recovered/Resolved]
  - Dysgeusia [Recovered/Resolved]
  - Oral discomfort [Recovered/Resolved]
  - Leukoplakia oral [Recovered/Resolved]
  - Oral contusion [Recovered/Resolved]
  - Dry mouth [Recovered/Resolved]
  - Irritability [Recovered/Resolved]
